FAERS Safety Report 23924212 (Version 1)
Quarter: 2024Q2

REPORT INFORMATION
  Report Type: Spontaneous
  Country: BR (occurrence: BR)
  Receive Date: 20240531
  Receipt Date: 20240531
  Transmission Date: 20240716
  Serious: Yes (Other)
  Sender: FDA-Public Use
  Company Number: BR-002147023-NVSC2024BR112596

PATIENT
  Sex: Female

DRUGS (2)
  1. INDACATEROL MALEATE [Suspect]
     Active Substance: INDACATEROL MALEATE
     Indication: Bronchitis
     Dosage: 300 UG (300 MCG CAPSULES INHALER POWDER WITH BLISTER ALUMINUM/ALU MINUM X 30 + 1 INHALER) (1 TABLET
     Route: 065
  2. INDACATEROL MALEATE [Suspect]
     Active Substance: INDACATEROL MALEATE
     Dosage: 150 UG, QD (150 MCG CAPSULES INHALER POWDER WITH BLISTER ALUMINUM/ALUMINUM X 30 + 1 INHALER) (1 TABL
     Route: 065

REACTIONS (9)
  - Deafness [Not Recovered/Not Resolved]
  - Malaise [Not Recovered/Not Resolved]
  - Anxiety [Not Recovered/Not Resolved]
  - Gait disturbance [Not Recovered/Not Resolved]
  - Product dispensing error [Unknown]
  - Incorrect dose administered [Unknown]
  - Product quality issue [Unknown]
  - Device issue [Unknown]
  - Off label use [Unknown]
